FAERS Safety Report 5568217-0 (Version None)
Quarter: 2007Q4

REPORT INFORMATION
  Report Type: 
  Country: None (occurrence: None)
  Receive Date: 20071218
  Receipt Date: 20071205
  Transmission Date: 20080405
  Serious: Yes (Other)
  Sender: FDA-Public Use
  Company Number: 2007BI026005

PATIENT
  Age: 61 Year
  Sex: Male

DRUGS (1)
  1. AVONEX [Suspect]
     Indication: MULTIPLE SCLEROSIS
     Dosage: 30 UG QW IM
     Route: 030
     Dates: start: 20000101

REACTIONS (5)
  - DEAFNESS UNILATERAL [None]
  - DIPLOPIA [None]
  - HAEMORRHOIDAL HAEMORRHAGE [None]
  - POST PROCEDURAL COMPLICATION [None]
  - TRIGEMINAL NEURALGIA [None]
